FAERS Safety Report 9996491 (Version 1)
Quarter: 2014Q1

REPORT INFORMATION
  Report Type: Spontaneous
  Country: US (occurrence: None)
  Receive Date: 20140310
  Receipt Date: 20140310
  Transmission Date: 20141002
  Serious: Yes (Other)
  Sender: FDA-Public Use
  Company Number: None

PATIENT
  Age: 46 Year
  Sex: Female
  Weight: 96.16 kg

DRUGS (8)
  1. FETZIMA [Suspect]
     Indication: DEPRESSION
     Route: 048
     Dates: start: 20140125, end: 20140207
  2. ALPRAZOLAM [Concomitant]
  3. EFFEXOR [Concomitant]
  4. ACCULAR [Concomitant]
  5. ALBUTEROL [Concomitant]
  6. ADVAIR [Concomitant]
  7. LEVOTHYROXINE [Concomitant]
  8. ABILIFY [Concomitant]

REACTIONS (3)
  - Nausea [None]
  - Headache [None]
  - Complex partial seizures [None]
